FAERS Safety Report 5329736-5 (Version None)
Quarter: 2007Q2

REPORT INFORMATION
  Report Type: 
  Country: None (occurrence: None)
  Receive Date: 20070521
  Receipt Date: 20070509
  Transmission Date: 20071010
  Serious: Yes (Life-Threatening, Congenital Anomaly)
  Sender: FDA-Public Use
  Company Number: FR-AMGEN-US225168

PATIENT
  Sex: Male

DRUGS (2)
  1. ENBREL [Suspect]
     Indication: DRUG USE FOR UNKNOWN INDICATION
     Dosage: UNKNOWN
     Route: 064
     Dates: start: 20041215
  2. SALAZOPYRINE [Suspect]
     Dosage: UNKNOWN
     Route: 064
     Dates: start: 19910615, end: 20051231

REACTIONS (3)
  - CONGENITAL PULMONARY ARTERY ANOMALY [None]
  - TRANSMISSION OF DRUG VIA SEMEN [None]
  - VENTRICULAR SEPTAL DEFECT [None]
